FAERS Safety Report 7074233-2 (Version None)
Quarter: 2010Q4

REPORT INFORMATION
  Report Type: 
  Country: None (occurrence: None)
  Receive Date: 20101029
  Receipt Date: 20101019
  Transmission Date: 20110411
  Serious: Yes (Other)
  Sender: FDA-Public Use
  Company Number: PL-ROCHE-735216

PATIENT
  Sex: Female

DRUGS (1)
  1. HERCEPTIN [Suspect]
     Indication: BREAST CANCER
     Dosage: DOSE: 6 MG/KG OF BODY MASS
     Route: 065
     Dates: start: 20100101

REACTIONS (1)
  - ENDOCARDITIS [None]
